FAERS Safety Report 12430037 (Version 1)
Quarter: 2016Q2

REPORT INFORMATION
  Report Type: Spontaneous
  Country: US (occurrence: US)
  Receive Date: 20160602
  Receipt Date: 20160602
  Transmission Date: 20160815
  Serious: Yes (Death, Life-Threatening)
  Sender: FDA-Public Use
  Company Number: US-MALLINCKRODT-T201602090

PATIENT

DRUGS (1)
  1. INOMAX [Suspect]
     Active Substance: NITRIC OXIDE
     Indication: PULMONARY HYPERTENSION
     Dosage: 20PPM
     Dates: start: 2016, end: 20160521

REACTIONS (4)
  - Cardiac disorder [Fatal]
  - Pulmonary haemorrhage [Unknown]
  - Off label use [Unknown]
  - Lung disorder [Fatal]

NARRATIVE: CASE EVENT DATE: 2016
